FAERS Safety Report 21589465 (Version 4)
Quarter: 2023Q2

REPORT INFORMATION
  Report Type: Report from Study
  Country: PR (occurrence: PR)
  Receive Date: 20221114
  Receipt Date: 20230615
  Transmission Date: 20230722
  Serious: Yes (Other)
  Sender: FDA-Public Use
  Company Number: PR-ABBVIE-4195018

PATIENT
  Sex: Male
  Weight: 97.975 kg

DRUGS (5)
  1. HUMIRA [Suspect]
     Active Substance: ADALIMUMAB
     Indication: Psoriasis
     Dosage: STRENGTH: 40 MILLIGRAM
     Route: 058
     Dates: start: 20180420
  2. ELASOMERAN [Concomitant]
     Active Substance: ELASOMERAN
     Indication: COVID-19 immunisation
     Dosage: THIRD DOSE?ONE IN ONCE
     Route: 030
     Dates: start: 20211026, end: 20211026
  3. ELASOMERAN [Concomitant]
     Active Substance: ELASOMERAN
     Indication: COVID-19 immunisation
     Dosage: FOURTH DOSE?ONE IN ONCE
     Route: 030
     Dates: start: 20220425, end: 20220425
  4. ELASOMERAN [Concomitant]
     Active Substance: ELASOMERAN
     Indication: COVID-19 immunisation
     Dosage: SECOND DOSE?ONE IN ONCE
     Route: 030
     Dates: start: 20210209, end: 20210209
  5. ELASOMERAN [Concomitant]
     Active Substance: ELASOMERAN
     Indication: COVID-19 immunisation
     Dosage: FIRST DOSE?ONE IN ONCE
     Route: 030
     Dates: start: 20210122, end: 20210122

REACTIONS (6)
  - Device related infection [Recovered/Resolved]
  - Arthritis [Unknown]
  - Genital infection bacterial [Not Recovered/Not Resolved]
  - Osteoarthritis [Unknown]
  - Postoperative wound infection [Recovered/Resolved]
  - Medical device implantation [Unknown]

NARRATIVE: CASE EVENT DATE: 20220801
